FAERS Safety Report 5594241-8 (Version None)
Quarter: 2008Q1

REPORT INFORMATION
  Report Type: 
  Country: None (occurrence: None)
  Receive Date: 20080114
  Receipt Date: 20080107
  Transmission Date: 20080703
  Serious: Yes (Hospitalization)
  Sender: FDA-Public Use
  Company Number: 2008EU000048

PATIENT
  Age: 49 Year
  Sex: Male
  Weight: 77 kg

DRUGS (4)
  1. VESICARE [Suspect]
     Indication: NOCTURIA
     Dosage: 5 MG/ D, ORAL
     Route: 048
     Dates: start: 20070530, end: 20071205
  2. DIHYDROCODEINE COMPOUND [Concomitant]
  3. LORATADINE [Concomitant]
  4. OMEPRAZOLE [Concomitant]

REACTIONS (1)
  - PANCREATITIS [None]
